FAERS Safety Report 6176060-7 (Version None)
Quarter: 2009Q2

REPORT INFORMATION
  Report Type: 
  Country: None (occurrence: None)
  Receive Date: 20090501
  Receipt Date: 20081029
  Transmission Date: 20091009
  Serious: Yes (Other)
  Sender: FDA-Public Use
  Company Number: BR-PFIZER INC-2009206179

PATIENT

DRUGS (6)
  1. GEMFIBROZIL [Suspect]
     Dosage: UNK
     Dates: start: 20070101, end: 20081001
  2. OLMETEC [Suspect]
     Dosage: 10 MG, 1/2 TABLET 1X/DAY
     Route: 048
     Dates: start: 20080826, end: 20080915
  3. OLMETEC [Suspect]
     Dosage: 10 MG, 1/2 TABLET 1X/DAY
     Route: 048
     Dates: start: 20081001
  4. SIMVASTATIN [Suspect]
     Indication: DRUG USE FOR UNKNOWN INDICATION
     Dosage: UNK
     Route: 065
     Dates: end: 20081001
  5. METFORMIN [Concomitant]
     Indication: DRUG USE FOR UNKNOWN INDICATION
     Dosage: UNK
     Route: 065
     Dates: start: 20030101
  6. SIBUTRAMINE [Suspect]
     Indication: DRUG USE FOR UNKNOWN INDICATION
     Dosage: UNK
     Dates: start: 20060101, end: 20081001

REACTIONS (1)
  - MALAISE [None]
